FAERS Safety Report 8175802-9 (Version None)
Quarter: 2012Q1

REPORT INFORMATION
  Report Type: 
  Country: None (occurrence: None)
  Receive Date: 20120228
  Receipt Date: 20120217
  Transmission Date: 20120608
  Serious: Yes (Life-Threatening, Hospitalization, Other)
  Sender: FDA-Public Use
  Company Number: AUR-APL-2011-05469

PATIENT
  Age: 48 Year
  Sex: Female

DRUGS (1)
  1. LAMOTRIGINE [Suspect]
     Indication: PRODUCT USED FOR UNKNOWN INDICATION
     Dosage: (7.5 GM), ORAL
     Route: 048

REACTIONS (25)
  - HYPOXIC-ISCHAEMIC ENCEPHALOPATHY [None]
  - GRAND MAL CONVULSION [None]
  - SINUS TACHYCARDIA [None]
  - ACIDOSIS [None]
  - CIRCULATORY COLLAPSE [None]
  - PO2 INCREASED [None]
  - PO2 DECREASED [None]
  - POSTURING [None]
  - NO THERAPEUTIC RESPONSE [None]
  - HYPERREFLEXIA [None]
  - BLOOD CALCIUM DECREASED [None]
  - TOXICITY TO VARIOUS AGENTS [None]
  - OVERDOSE [None]
  - NODAL ARRHYTHMIA [None]
  - BLOOD POTASSIUM DECREASED [None]
  - BLOOD GLUCOSE INCREASED [None]
  - STATUS EPILEPTICUS [None]
  - ELECTROCARDIOGRAM QRS COMPLEX PROLONGED [None]
  - MYOCLONUS [None]
  - BLOOD PH INCREASED [None]
  - BRAIN OEDEMA [None]
  - ELECTROCARDIOGRAM QT PROLONGED [None]
  - PULSE ABSENT [None]
  - LOSS OF CONSCIOUSNESS [None]
  - CARDIOTOXICITY [None]
